FAERS Safety Report 19008709 (Version 2)
Quarter: 2021Q1

REPORT INFORMATION
  Report Type: Report from Study
  Country: None (occurrence: US)
  Receive Date: 20210316
  Receipt Date: 20210330
  Transmission Date: 20210420
  Serious: Yes (Hospitalization)
  Sender: FDA-Public Use
  Company Number: US-ABBVIE-21K-163-3814904-00

PATIENT
  Age: 56 Year
  Sex: Female
  Weight: 48.12 kg

DRUGS (3)
  1. RINVOQ [Suspect]
     Active Substance: UPADACITINIB
     Route: 048
     Dates: start: 202003
  2. MODERNA COVID?19 VACCINE [Suspect]
     Active Substance: CX-024414
     Indication: COVID-19 IMMUNISATION
     Dosage: MODERN
     Route: 030
     Dates: start: 20210315, end: 20210315
  3. RINVOQ [Suspect]
     Active Substance: UPADACITINIB
     Indication: RHEUMATOID ARTHRITIS
     Route: 048
     Dates: start: 20210214, end: 2021

REACTIONS (3)
  - Thrombosis [Recovering/Resolving]
  - Procedural dizziness [Not Recovered/Not Resolved]
  - Femur fracture [Recovering/Resolving]

NARRATIVE: CASE EVENT DATE: 202008
